FAERS Safety Report 24012880 (Version 1)
Quarter: 2024Q2

REPORT INFORMATION
  Report Type: Report from Study
  Country: US (occurrence: US)
  Receive Date: 20240626
  Receipt Date: 20240626
  Transmission Date: 20240715
  Serious: No
  Sender: FDA-Public Use
  Company Number: US-Accord-286944

PATIENT
  Age: 88 Year
  Sex: Male

DRUGS (3)
  1. AMLODIPINE [Suspect]
     Active Substance: AMLODIPINE BESYLATE
     Indication: Product used for unknown indication
  2. RELUGOLIX [Suspect]
     Active Substance: RELUGOLIX
     Indication: Prostate cancer
     Dosage: STRENGTH: 120 MILLIGRAM, ?360 MILLIGRAM, ONE TIME DOSE
     Route: 048
     Dates: start: 20211208, end: 20211208
  3. RELUGOLIX [Suspect]
     Active Substance: RELUGOLIX
     Indication: Prostate cancer
     Dosage: STRENGTH: 120 MILLIGRAM
     Route: 048
     Dates: start: 20211209

REACTIONS (2)
  - Blood pressure decreased [Not Recovered/Not Resolved]
  - Asthenia [Unknown]
